FAERS Safety Report 5332078-5 (Version None)
Quarter: 2007Q2

REPORT INFORMATION
  Report Type: 
  Country: None (occurrence: None)
  Receive Date: 20070523
  Receipt Date: 20070516
  Transmission Date: 20071010
  Serious: Yes (Death, Hospitalization)
  Sender: FDA-Public Use
  Company Number: GB-AVENTIS-200712422EU

PATIENT
  Age: 60 Year
  Sex: Male

DRUGS (2)
  1. CLEXANE [Suspect]
  2. CLEXANE [Suspect]
     Indication: ACUTE CORONARY SYNDROME

REACTIONS (2)
  - ARTERIAL HAEMORRHAGE [None]
  - PNEUMONIA [None]
